FAERS Safety Report 6259238-3 (Version None)
Quarter: 2009Q3

REPORT INFORMATION
  Report Type: 
  Country: None (occurrence: None)
  Receive Date: 20090702
  Receipt Date: 20090618
  Transmission Date: 20100115
  Serious: Yes (Hospitalization)
  Sender: FDA-Public Use
  Company Number: KV200900287

PATIENT
  Age: 60 Year
  Sex: Male
  Weight: 99.8 kg

DRUGS (6)
  1. MORPHINE SULFATE [Suspect]
     Indication: BACK PAIN
     Dosage: 60 MG. TID, ORAL
     Route: 048
     Dates: start: 20031130
  2. MORPHINE SULFATE [Suspect]
     Indication: BACK PAIN
     Dosage: 30 MG, TID-QID, ORAL
     Route: 048
  3. OXYCONTIN [Suspect]
     Indication: BACK PAIN
  4. HYDROCHLOROTHIAZIDE [Concomitant]
  5. NORTRIPTYLINE HCL [Concomitant]
  6. NEURONTIN [Concomitant]

REACTIONS (15)
  - CONFUSIONAL STATE [None]
  - DIABETES MELLITUS [None]
  - HYPERKALAEMIA [None]
  - HYPOTENSION [None]
  - LETHARGY [None]
  - LOSS OF CONSCIOUSNESS [None]
  - MUSCLE TWITCHING [None]
  - MYOCARDIAL ISCHAEMIA [None]
  - NAUSEA [None]
  - OBSTRUCTIVE AIRWAYS DISORDER [None]
  - RENAL FAILURE ACUTE [None]
  - RESPIRATORY FAILURE [None]
  - RESTRICTIVE PULMONARY DISEASE [None]
  - SOMNOLENCE [None]
  - VOMITING [None]
